FAERS Safety Report 12390834 (Version 1)
Quarter: 2016Q2

REPORT INFORMATION
  Report Type: Spontaneous
  Country: RO (occurrence: RO)
  Receive Date: 20160520
  Receipt Date: 20160520
  Transmission Date: 20160815
  Serious: Yes (Other)
  Sender: FDA-Public Use
  Company Number: RO-GLAXOSMITHKLINE-RO2016GSK067761

PATIENT
  Age: 9 Year

DRUGS (10)
  1. CEFTRIAXONE. [Suspect]
     Active Substance: CEFTRIAXONE
     Indication: ANTI-INFECTIVE THERAPY
  2. FLUCONAZOLE. [Suspect]
     Active Substance: FLUCONAZOLE
     Indication: ANTI-INFECTIVE THERAPY
     Dosage: 0.2%
  3. ACICLOVIR [Suspect]
     Active Substance: ACYCLOVIR
     Indication: OPHTHALMIC HERPES SIMPLEX
     Dosage: UNK
  4. ACICLOVIR [Suspect]
     Active Substance: ACYCLOVIR
     Dosage: UNK
  5. CIPROFLOXACIN. [Suspect]
     Active Substance: CIPROFLOXACIN
     Indication: ANTI-INFECTIVE THERAPY
     Dosage: 0.3%
     Route: 061
  6. MOXIFLOXACIN. [Suspect]
     Active Substance: MOXIFLOXACIN
     Indication: ANTI-INFECTIVE THERAPY
     Dosage: 0.5%
  7. CEFUROXIME. [Suspect]
     Active Substance: CEFUROXIME
     Indication: ANTI-INFECTIVE THERAPY
  8. DEXAMETHASONE. [Suspect]
     Active Substance: DEXAMETHASONE
     Indication: PRODUCT USED FOR UNKNOWN INDICATION
     Route: 042
  9. IBUPROFEN. [Suspect]
     Active Substance: IBUPROFEN
     Indication: OPHTHALMIC HERPES SIMPLEX
  10. GENTAMICIN. [Suspect]
     Active Substance: GENTAMICIN
     Indication: ANTI-INFECTIVE THERAPY

REACTIONS (3)
  - Drug ineffective [Unknown]
  - Pathogen resistance [Unknown]
  - Therapeutic response decreased [Unknown]
